FAERS Safety Report 24194005 (Version 1)
Quarter: 2024Q3

REPORT INFORMATION
  Report Type: Spontaneous
  Country: FR (occurrence: FR)
  Receive Date: 20240809
  Receipt Date: 20240809
  Transmission Date: 20241017
  Serious: Yes (Hospitalization)
  Sender: ORGANON
  Company Number: None

PATIENT
  Age: 18 Year
  Sex: Female

DRUGS (11)
  1. MIRTAZAPINE [Suspect]
     Active Substance: MIRTAZAPINE
     Dosage: 1 CP : 15MG
     Route: 048
     Dates: start: 20240721, end: 20240721
  2. CANNABIS SATIVA SUBSP. INDICA TOP [Suspect]
     Active Substance: CANNABIS SATIVA SUBSP. INDICA TOP
     Dosage: OCASSIONAL
     Dates: start: 2013, end: 2020
  3. CANNABIS SATIVA SUBSP. INDICA TOP [Suspect]
     Active Substance: CANNABIS SATIVA SUBSP. INDICA TOP
     Dosage: 4-6 JOINTS PER DAY
     Dates: start: 2020
  4. COCAINE [Suspect]
     Active Substance: COCAINE
     Dosage: OCASSIONAL
     Route: 045
     Dates: start: 2022
  5. KETAMINE [Suspect]
     Active Substance: KETAMINE
     Dosage: 10 TRACES/DAY
     Route: 045
     Dates: start: 202312, end: 202403
  6. KETAMINE [Suspect]
     Active Substance: KETAMINE
     Dosage: OCASSIONAL
     Route: 045
     Dates: start: 202403
  7. CYAMEMAZINE [Suspect]
     Active Substance: CYAMEMAZINE
     Dosage: 1 MOUTHFUL
     Route: 048
     Dates: start: 20240721, end: 20240721
  8. ALCOHOL [Suspect]
     Active Substance: ALCOHOL
     Dosage: 9 STANDARD UNITS PER DAY
     Route: 048
  9. ALCOHOL [Suspect]
     Active Substance: ALCOHOL
     Dosage: 75 CL BEER
     Route: 048
     Dates: start: 20240721, end: 20240721
  10. XANAX [Suspect]
     Active Substance: ALPRAZOLAM
     Dosage: UNK, QD
     Route: 048
  11. XANAX [Suspect]
     Active Substance: ALPRAZOLAM
     Dosage: 30 TABLET OR 7.5 MILLIGRAM
     Route: 048
     Dates: start: 20240721, end: 20240721

REACTIONS (4)
  - Mydriasis [Recovered/Resolved]
  - Somnolence [Recovered/Resolved]
  - Toxicity to various agents [Recovered/Resolved]
  - Drug abuse [Not Recovered/Not Resolved]

NARRATIVE: CASE EVENT DATE: 20130101
